FAERS Safety Report 6061635-6 (Version None)
Quarter: 2009Q1

REPORT INFORMATION
  Report Type: 
  Country: None (occurrence: None)
  Receive Date: 20090202
  Receipt Date: 20090128
  Transmission Date: 20090719
  Serious: Yes (Other)
  Sender: FDA-Public Use
  Company Number: A0765471A

PATIENT
  Age: 47 Year
  Sex: Female

DRUGS (5)
  1. TREXIMET [Suspect]
     Indication: MIGRAINE
     Dosage: 1TAB SINGLE DOSE
     Route: 048
     Dates: start: 20081230
  2. IMITREX [Suspect]
     Indication: MIGRAINE
     Dates: start: 19930101
  3. SUMATRIPTAN SUCCINATE [Suspect]
     Indication: MIGRAINE
  4. TOPAMAX [Concomitant]
  5. MULTIPLE MEDICATIONS [Concomitant]

REACTIONS (4)
  - BURNING SENSATION [None]
  - DRUG INEFFECTIVE [None]
  - HAEMATEMESIS [None]
  - ULCER HAEMORRHAGE [None]
